FAERS Safety Report 8454204-1 (Version None)
Quarter: 2012Q2

REPORT INFORMATION
  Report Type: 
  Country: None (occurrence: None)
  Receive Date: 20120620
  Receipt Date: 20120611
  Transmission Date: 20120825
  Serious: Yes (Other)
  Sender: FDA-Public Use
  Company Number: CA-ROCHE-1061911

PATIENT
  Sex: Male

DRUGS (5)
  1. OMALIZUMAB [Suspect]
     Indication: ASTHMA
     Route: 058
     Dates: start: 20110927
  2. PREDNISONE TAB [Concomitant]
  3. ATROVENT [Concomitant]
  4. VENTOLIN [Concomitant]
  5. FLOVENT [Concomitant]

REACTIONS (5)
  - OROPHARYNGEAL PAIN [None]
  - MYALGIA [None]
  - COUGH [None]
  - MUSCULOSKELETAL CHEST PAIN [None]
  - HAEMATOCHEZIA [None]
